FAERS Safety Report 21559500 (Version 7)
Quarter: 2023Q1

REPORT INFORMATION
  Report Type: Report from Study
  Country: FR (occurrence: FR)
  Receive Date: 20221107
  Receipt Date: 20230314
  Transmission Date: 20230418
  Serious: Yes (Other)
  Sender: FDA-Public Use
  Company Number: FR-002147023-NVSC2022FR249548

PATIENT
  Age: 48 Year
  Sex: Female

DRUGS (4)
  1. ASCIMINIB [Suspect]
     Active Substance: ASCIMINIB
     Indication: Chronic myeloid leukaemia
     Dosage: 80 MG, QD
     Route: 065
     Dates: start: 20220829, end: 20220914
  2. ASCIMINIB [Suspect]
     Active Substance: ASCIMINIB
     Dosage: 40 MG, QD
     Route: 065
     Dates: start: 20221018, end: 20221107
  3. ASCIMINIB [Suspect]
     Active Substance: ASCIMINIB
     Dosage: 40 MG, DAILY / EVERY OTHER DAY)
     Route: 065
     Dates: start: 20221130, end: 20230213
  4. ASCIMINIB [Suspect]
     Active Substance: ASCIMINIB
     Dosage: 40 MG, 5 X WEEKLY (EVERY OTHER DAY FROM MONDAY TO FRIDAY, SATURDAY AND SUNDAY)
     Route: 065
     Dates: start: 20230214

REACTIONS (8)
  - Renal failure [Unknown]
  - Liver disorder [Unknown]
  - Blood alkaline phosphatase abnormal [Unknown]
  - Gamma-glutamyltransferase abnormal [Unknown]
  - Cardiotoxicity [Unknown]
  - Anaemia [Unknown]
  - Adverse event [Unknown]
  - Drug ineffective [Unknown]
